FAERS Safety Report 6472242-5 (Version None)
Quarter: 2009Q4

REPORT INFORMATION
  Report Type: 
  Country: None (occurrence: None)
  Receive Date: 20091203
  Receipt Date: 20081205
  Transmission Date: 20100525
  Serious: No
  Sender: FDA-Public Use
  Company Number: US-AMGEN-KDL322279

PATIENT
  Sex: Female

DRUGS (3)
  1. ENBREL [Suspect]
     Indication: RHEUMATOID ARTHRITIS
     Route: 058
     Dates: start: 20080115
  2. PLAQUENIL [Concomitant]
     Dates: start: 20030101
  3. METHOTREXATE [Concomitant]
     Dates: start: 20040101

REACTIONS (3)
  - CONDITION AGGRAVATED [None]
  - COUGH [None]
  - DRY MOUTH [None]
